FAERS Safety Report 5219489-3 (Version None)
Quarter: 2007Q1

REPORT INFORMATION
  Report Type: 
  Country: None (occurrence: None)
  Receive Date: 20070125
  Receipt Date: 20070117
  Transmission Date: 20070707
  Serious: Yes (Hospitalization, Other)
  Sender: FDA-Public Use
  Company Number: JP-PFIZER INC-2006131530

PATIENT
  Sex: Male
  Weight: 91 kg

DRUGS (3)
  1. LIPITOR [Suspect]
     Route: 048
     Dates: start: 20060201, end: 20061015
  2. ACTOS [Suspect]
     Indication: DIABETES MELLITUS
     Route: 048
     Dates: start: 20050601, end: 20061015
  3. AMARYL [Concomitant]
     Indication: DIABETES MELLITUS
     Route: 048
     Dates: start: 20050601, end: 20061015

REACTIONS (8)
  - BACK PAIN [None]
  - BLOOD CREATINE PHOSPHOKINASE INCREASED [None]
  - DEPRESSED LEVEL OF CONSCIOUSNESS [None]
  - MELAENA [None]
  - MYELITIS [None]
  - NASOPHARYNGITIS [None]
  - POLLAKIURIA [None]
  - PYREXIA [None]
